FAERS Safety Report 7891982-4 (Version None)
Quarter: 2011Q4

REPORT INFORMATION
  Report Type: 
  Country: None (occurrence: None)
  Receive Date: 20111103
  Receipt Date: 20110812
  Transmission Date: 20120403
  Serious: No
  Sender: FDA-Public Use
  Company Number: US-AMGEN-USASP2011041298

PATIENT
  Age: 60 Year
  Sex: Female

DRUGS (2)
  1. ENBREL [Suspect]
     Indication: RHEUMATOID ARTHRITIS
     Dosage: 50 MG, QWK
     Dates: start: 20050531
  2. ENBREL [Suspect]
     Indication: PSORIASIS

REACTIONS (7)
  - INCREASED TENDENCY TO BRUISE [None]
  - GRIP STRENGTH DECREASED [None]
  - PSORIASIS [None]
  - INITIAL INSOMNIA [None]
  - INJECTION SITE PAIN [None]
  - CELLULITIS [None]
  - NASOPHARYNGITIS [None]
